FAERS Safety Report 7572220-9 (Version None)
Quarter: 2011Q2

REPORT INFORMATION
  Report Type: 
  Country: None (occurrence: None)
  Receive Date: 20110624
  Receipt Date: 20110613
  Transmission Date: 20111010
  Serious: Yes (Other)
  Sender: FDA-Public Use
  Company Number: PHFR2011GB01095

PATIENT
  Sex: Female

DRUGS (9)
  1. DIAZEPAM [Concomitant]
     Dosage: 5 MG, UNK
     Route: 048
  2. CLOZAPINE [Suspect]
     Indication: SCHIZOPHRENIA
     Dosage: 450MG, (350 MG MORNING AND 100 MG AT NIGHT)
     Route: 048
     Dates: start: 20110106
  3. FLUOXETINE HCL [Concomitant]
     Indication: AFFECTIVE DISORDER
     Dosage: 20 MG, UNK
     Route: 048
  4. TRIHEXYPHENIDYL HCL [Concomitant]
     Indication: SALIVARY HYPERSECRETION
     Dosage: 5 MG, QD
     Route: 048
  5. VALPROIC ACID [Concomitant]
     Indication: AFFECTIVE DISORDER
     Dosage: 100 MG, UNK
     Route: 048
  6. LANSOPRAZOLE [Concomitant]
     Dosage: 30 MG, UNK
     Route: 048
  7. ZOPICLONE [Concomitant]
     Dosage: 7.5 MG, UNK
     Route: 048
  8. CLOZAPINE [Suspect]
     Indication: PSYCHOTIC DISORDER
  9. LAXATIVES [Concomitant]
     Dosage: UNK
     Route: 048

REACTIONS (1)
  - MEDICATION ERROR [None]
